FAERS Safety Report 18654031 (Version 1)
Quarter: 2020Q4

REPORT INFORMATION
  Report Type: Spontaneous
  Country: US (occurrence: US)
  Receive Date: 20201223
  Receipt Date: 20201223
  Transmission Date: 20210114
  Serious: No
  Sender: FDA-Public Use
  Company Number: US-ASTRAZENECA-2020SF59724

PATIENT
  Age: 670 Month
  Sex: Female
  Weight: 78 kg

DRUGS (1)
  1. BYETTA [Suspect]
     Active Substance: EXENATIDE
     Indication: DIABETES MELLITUS
     Route: 058
     Dates: start: 202005

REACTIONS (4)
  - Intentional device misuse [Unknown]
  - Illness [Unknown]
  - Device issue [Unknown]
  - Neurotransmitter level altered [Unknown]

NARRATIVE: CASE EVENT DATE: 202009
